FAERS Safety Report 18653592 (Version 3)
Quarter: 2021Q1

REPORT INFORMATION
  Report Type: Spontaneous
  Country: PK (occurrence: PK)
  Receive Date: 20201223
  Receipt Date: 20210319
  Transmission Date: 20210419
  Serious: Yes (Hospitalization)
  Sender: FDA-Public Use
  Company Number: PK-AMGEN-PAKSP2020208339

PATIENT
  Age: 40 Year
  Sex: Male

DRUGS (7)
  1. SULFASALAZINE. [Concomitant]
     Active Substance: SULFASALAZINE
     Dosage: 2 G/DAY
  2. ACECLOFENAC [Concomitant]
     Active Substance: ACECLOFENAC
     Dosage: 1X1
  3. ENBREL [Suspect]
     Active Substance: ETANERCEPT
     Indication: ANKYLOSING SPONDYLITIS
     Dosage: 50 MG, WEEKLY
     Route: 058
  4. METHOTREXATE. [Concomitant]
     Active Substance: METHOTREXATE
     Dosage: 10 MG, WEEKLY
  5. SALAZINE [Concomitant]
     Active Substance: SULFASALAZINE
     Dosage: 500 MG (1X1)
  6. ACECLOFENAC [Concomitant]
     Active Substance: ACECLOFENAC
     Dosage: 1X1
  7. ESOMEPRAZOLE. [Concomitant]
     Active Substance: ESOMEPRAZOLE MAGNESIUM
     Dosage: UNK

REACTIONS (2)
  - Back pain [Unknown]
  - Neck pain [Unknown]
